FAERS Safety Report 10678465 (Version 1)
Quarter: 2014Q4

REPORT INFORMATION
  Report Type: Spontaneous
  Country: US (occurrence: US)
  Receive Date: 20141229
  Receipt Date: 20141229
  Transmission Date: 20150529
  Serious: Yes (Hospitalization)
  Sender: FDA-Public Use
  Company Number: US-PFIZER INC-2014355733

PATIENT
  Age: 74 Year
  Sex: Male
  Weight: 97.51 kg

DRUGS (11)
  1. ACETAMINOPHEN AND CODEINE [Concomitant]
     Active Substance: ACETAMINOPHEN\CODEINE PHOSPHATE
     Dosage: 4 DF, UNK(DAILY EVERY 6 HOURS)
  2. ATORVASTATIN [Concomitant]
     Active Substance: ATORVASTATIN
     Dosage: 40 MG, DAILY
  3. ASPIRIN. [Concomitant]
     Active Substance: ASPIRIN
     Dosage: UNK(LOW DOSE), 1X/DAY
  4. NAPROXEN. [Concomitant]
     Active Substance: NAPROXEN
     Dosage: 500 MG, UNK(Q12H)
  5. SUTENT [Suspect]
     Active Substance: SUNITINIB MALATE
     Indication: RENAL CANCER METASTATIC
     Dosage: 37.5 MG, DAILY, CYCLIC, 28 DAYS ON AND 14 DAYS OFF
     Dates: start: 20141122, end: 20141212
  6. AMLODIPINE [Concomitant]
     Active Substance: AMLODIPINE BESYLATE
     Dosage: 10 MG, DAILY
  7. TERAZOSIN [Concomitant]
     Active Substance: TERAZOSIN\TERAZOSIN HYDROCHLORIDE
     Dosage: 10 MG, DAILY
  8. FINASTERIDE. [Concomitant]
     Active Substance: FINASTERIDE
     Dosage: 5 MG, DAILY
  9. OMEPRAZOLE. [Concomitant]
     Active Substance: OMEPRAZOLE
     Dosage: 20 MG, DAILY
  10. LISINOPRIL AND HYDROCHLOROTHIAZIDE [Concomitant]
     Active Substance: HYDROCHLOROTHIAZIDE\LISINOPRIL
     Dosage: 32.5 MG (LISINOPRIL 20MG WITH 12.5MGHYDROCHLOROTHIAZIDE), 2X/DAY
  11. METOPROLOL [Concomitant]
     Active Substance: METOPROLOL
     Dosage: 75 MG, DAILY

REACTIONS (4)
  - Heart rate increased [Unknown]
  - Thrombosis [Recovering/Resolving]
  - Hypertension [Unknown]
  - Pulmonary thrombosis [Recovering/Resolving]
